FAERS Safety Report 6277647-3 (Version None)
Quarter: 2009Q3

REPORT INFORMATION
  Report Type: 
  Country: None (occurrence: None)
  Receive Date: 20090717
  Receipt Date: 20090717
  Transmission Date: 20100115
  Serious: Yes (Other)
  Sender: FDA-Public Use
  Company Number: None

PATIENT
  Age: 47 Year
  Sex: Female
  Weight: 99.7913 kg

DRUGS (8)
  1. NEURONTIN [Suspect]
  2. SEROQUEL [Suspect]
  3. LITIUM CARBONATE [Concomitant]
  4. ZYPREXA [Concomitant]
  5. ZOLOFT [Concomitant]
  6. PAXIL [Concomitant]
  7. TOPAMAX [Concomitant]
  8. AMBIEN [Concomitant]

REACTIONS (12)
  - ALOPECIA [None]
  - APPARENT DEATH [None]
  - ASTHENIA [None]
  - BLINDNESS UNILATERAL [None]
  - HEPATIC ENZYME INCREASED [None]
  - HYPOTHYROIDISM [None]
  - INSOMNIA [None]
  - MANIA [None]
  - METAL POISONING [None]
  - NIGHTMARE [None]
  - RASH [None]
  - SJOGREN'S SYNDROME [None]
